FAERS Safety Report 7027330-1 (Version None)
Quarter: 2010Q4

REPORT INFORMATION
  Report Type: 
  Country: None (occurrence: None)
  Receive Date: 20101004
  Receipt Date: 20100923
  Transmission Date: 20110411
  Serious: Yes (Death, Other)
  Sender: FDA-Public Use
  Company Number: PHHY2010US63566

PATIENT
  Age: 42 Year
  Sex: Male

DRUGS (3)
  1. FANAPT [Suspect]
     Dosage: UNK
     Route: 048
     Dates: start: 20091201
  2. SAPHRIS [Suspect]
     Dosage: UNK
  3. PAXIL [Concomitant]

REACTIONS (2)
  - NEOPLASM MALIGNANT [None]
  - SUICIDAL IDEATION [None]
